FAERS Safety Report 15613443 (Version 2)
Quarter: 2020Q1

REPORT INFORMATION
  Report Type: Spontaneous
  Country: US (occurrence: US)
  Receive Date: 20181113
  Receipt Date: 20200116
  Transmission Date: 20200409
  Serious: No
  Sender: FDA-Public Use
  Company Number: US-PFIZER INC-2018449700

PATIENT
  Age: 63 Year
  Sex: Female

DRUGS (1)
  1. XELJANZ [Suspect]
     Active Substance: TOFACITINIB CITRATE
     Dosage: 5 MG, ONCE A DAY
     Dates: start: 20180911

REACTIONS (4)
  - Circumstance or information capable of leading to medication error [Unknown]
  - Wrong dose [Unknown]
  - Parosmia [Unknown]
  - Therapeutic product effect incomplete [Unknown]
